FAERS Safety Report 15319427 (Version 1)
Quarter: 2018Q3

REPORT INFORMATION
  Report Type: Spontaneous
  Country: DK (occurrence: DK)
  Receive Date: 20180827
  Receipt Date: 20180827
  Transmission Date: 20181010
  Serious: Yes (Disabling)
  Sender: FDA-Public Use
  Company Number: DK-TEVA-2018-DK-946961

PATIENT
  Age: 58 Year
  Sex: Female
  Weight: 70 kg

DRUGS (1)
  1. ALENDRONAT [Suspect]
     Active Substance: ALENDRONATE SODIUM
     Indication: OSTEOPOROSIS
     Dosage: STYRKE: 70 MG
     Route: 048
     Dates: start: 20160113, end: 20180625

REACTIONS (3)
  - Periodontitis [Not Recovered/Not Resolved]
  - Intestinal haemorrhage [Recovered/Resolved]
  - Alopecia [Not Recovered/Not Resolved]

NARRATIVE: CASE EVENT DATE: 20160201
